FAERS Safety Report 9452325 (Version 1)
Quarter: 2013Q3

REPORT INFORMATION
  Report Type: Spontaneous
  Country: US (occurrence: US)
  Receive Date: 20130812
  Receipt Date: 20130812
  Transmission Date: 20140515
  Serious: Yes (Other)
  Sender: FDA-Public Use
  Company Number: US-ELI_LILLY_AND_COMPANY-US201308000116

PATIENT
  Age: 75 Year
  Sex: Female

DRUGS (2)
  1. CYMBALTA [Suspect]
     Indication: DEPRESSION
     Dosage: 30 MG, QD
     Route: 065
     Dates: start: 20130703, end: 20130729
  2. VALIUM [Concomitant]
     Dosage: 10 MG, EACH EVENING
     Route: 065

REACTIONS (20)
  - Loss of consciousness [Recovered/Resolved]
  - Face injury [Unknown]
  - Fall [Recovered/Resolved]
  - Scar [Not Recovered/Not Resolved]
  - Off label use [Recovered/Resolved]
  - Oral mucosal erythema [Not Recovered/Not Resolved]
  - Oral disorder [Not Recovered/Not Resolved]
  - Device failure [Not Recovered/Not Resolved]
  - Gingival recession [Not Recovered/Not Resolved]
  - Musculoskeletal disorder [Not Recovered/Not Resolved]
  - Local swelling [Not Recovered/Not Resolved]
  - Stomatitis [Not Recovered/Not Resolved]
  - Haemorrhage [Unknown]
  - Oral pain [Not Recovered/Not Resolved]
  - Dysphagia [Not Recovered/Not Resolved]
  - Insomnia [Not Recovered/Not Resolved]
  - Gastrointestinal pain [Not Recovered/Not Resolved]
  - Feeling cold [Not Recovered/Not Resolved]
  - Feeling hot [Not Recovered/Not Resolved]
  - Middle insomnia [Not Recovered/Not Resolved]
